FAERS Safety Report 24422691 (Version 1)
Quarter: 2024Q4

REPORT INFORMATION
  Report Type: Spontaneous
  Country: US (occurrence: US)
  Receive Date: 20241010
  Receipt Date: 20241010
  Transmission Date: 20250115
  Serious: No
  Sender: BAYER
  Company Number: US-BAYER-2024A143958

PATIENT
  Sex: Female
  Weight: 64.399 kg

DRUGS (7)
  1. MIRALAX [Suspect]
     Active Substance: POLYETHYLENE GLYCOL 3350
     Indication: Constipation
  2. LENVIMA [Concomitant]
     Active Substance: LENVATINIB
     Dosage: 20 MG, QD
     Route: 048
  3. LEVOTHYROXINE SODIUM [Concomitant]
     Active Substance: LEVOTHYROXINE SODIUM
  4. VITAMIN D3 [Concomitant]
     Active Substance: CHOLECALCIFEROL
  5. FISH OIL [Concomitant]
     Active Substance: FISH OIL
  6. VITAMINS [Concomitant]
     Active Substance: VITAMINS
  7. KEYTRUDA [Concomitant]
     Active Substance: PEMBROLIZUMAB

REACTIONS (2)
  - Abdominal pain upper [Not Recovered/Not Resolved]
  - Abdominal discomfort [Not Recovered/Not Resolved]
